FAERS Safety Report 7729548-9 (Version None)
Quarter: 2011Q3

REPORT INFORMATION
  Report Type: 
  Country: None (occurrence: None)
  Receive Date: 20110901
  Receipt Date: 20110901
  Transmission Date: 20111222
  Serious: Yes (Hospitalization)
  Sender: FDA-Public Use
  Company Number: None

PATIENT
  Age: 87 Year
  Sex: Female
  Weight: 91.3 kg

DRUGS (3)
  1. LOVENOX [Suspect]
     Indication: THROMBOSIS PROPHYLAXIS
     Dosage: 30 MG ONCE DAILY SUBCUTANEOUS
     Route: 058
     Dates: start: 20110201
  2. LOVENOX [Suspect]
     Indication: THROMBOSIS PROPHYLAXIS
     Dosage: 30 MG ONCE DAILY SUBCUTANEOUS
     Route: 058
     Dates: start: 20110204
  3. SIMVASTATIN [Concomitant]

REACTIONS (2)
  - PANCREATITIS ACUTE [None]
  - HEPARIN-INDUCED THROMBOCYTOPENIA [None]
